FAERS Safety Report 6297474-0 (Version None)
Quarter: 2009Q3

REPORT INFORMATION
  Report Type: 
  Country: None (occurrence: None)
  Receive Date: 20090805
  Receipt Date: 20090720
  Transmission Date: 20100115
  Serious: Yes (Hospitalization, Disabling, Other)
  Sender: FDA-Public Use
  Company Number: GB-CELGENEUS-167-20484-09072203

PATIENT
  Age: 34 Year
  Sex: Female
  Weight: 62 kg

DRUGS (8)
  1. INNOHEP [Suspect]
     Route: 058
     Dates: start: 19970731, end: 19971019
  2. INNOHEP [Suspect]
     Route: 058
     Dates: start: 19971019, end: 19980330
  3. WARFARIN SODIUM [Concomitant]
     Route: 065
     Dates: end: 19980801
  4. ASPIRIN [Concomitant]
     Route: 065
  5. FOLIC ACID [Concomitant]
     Indication: PROPHYLAXIS OF NEURAL TUBE DEFECT
     Route: 065
  6. RANITIDINE [Concomitant]
     Route: 065
  7. CHLOROQUINE [Concomitant]
     Route: 065
  8. PROPRANOLOL [Concomitant]
     Indication: MIGRAINE
     Route: 065

REACTIONS (3)
  - DRUG EXPOSURE DURING PREGNANCY [None]
  - OSTEOPOROSIS [None]
  - POSTPARTUM HAEMORRHAGE [None]
